FAERS Safety Report 5336175-X (Version None)
Quarter: 2007Q2

REPORT INFORMATION
  Report Type: 
  Country: None (occurrence: None)
  Receive Date: 20070302
  Receipt Date: 20070118
  Transmission Date: 20071010
  Serious: No
  Sender: FDA-Public Use
  Company Number: PHEH2006US15252

PATIENT
  Age: 75 Year
  Sex: Female

DRUGS (2)
  1. ENABLEX [Suspect]
     Indication: HYPERTONIC BLADDER
     Dosage: 7.5 MG, QD
     Dates: start: 20061215, end: 20061218
  2. SPIRIVA [Concomitant]

REACTIONS (5)
  - EXCORIATION [None]
  - FUNGAL INFECTION [None]
  - PRURITUS [None]
  - PRURITUS GENITAL [None]
  - RASH [None]
